FAERS Safety Report 7380209-8 (Version None)
Quarter: 2011Q1

REPORT INFORMATION
  Report Type: 
  Country: None (occurrence: None)
  Receive Date: 20110329
  Receipt Date: 20110317
  Transmission Date: 20110831
  Serious: No
  Sender: FDA-Public Use
  Company Number: US-MYLANLABS-2011S1001729

PATIENT
  Age: 50 Year
  Sex: Female
  Weight: 87.09 kg

DRUGS (2)
  1. ESTRADIOL [Suspect]
     Indication: MENOPAUSAL SYMPTOMS
     Dosage: Q WEEKLY
     Route: 062
     Dates: start: 20090919
  2. ESTRADIOL [Suspect]
     Indication: HORMONE REPLACEMENT THERAPY
     Dosage: Q WEEKLY
     Route: 062
     Dates: start: 20090919

REACTIONS (7)
  - APPLICATION SITE EROSION [None]
  - APPLICATION SITE ERYTHEMA [None]
  - OPEN WOUND [None]
  - APPLICATION SITE HYPERSENSITIVITY [None]
  - APPLICATION SITE PRURITUS [None]
  - APPLICATION SITE SCAR [None]
  - APPLICATION SITE VESICLES [None]
